FAERS Safety Report 4299316-1 (Version None)
Quarter: 2004Q1

REPORT INFORMATION
  Report Type: 
  Country: None (occurrence: None)
  Receive Date: 20040217
  Receipt Date: 20030710
  Transmission Date: 20041129
  Serious: Yes (Hospitalization)
  Sender: FDA-Public Use
  Company Number: US041026

PATIENT
  Age: 42 Year
  Sex: Male

DRUGS (1)
  1. ETANERCEPT [Suspect]
     Indication: ANKYLOSING SPONDYLITIS
     Dosage: TWICE WEEKLY, SC
     Route: 058
     Dates: start: 20020927

REACTIONS (5)
  - BONE SWELLING [None]
  - CELLULITIS [None]
  - ERYTHEMA [None]
  - INFLUENZA LIKE ILLNESS [None]
  - PAIN IN EXTREMITY [None]
